FAERS Safety Report 4983708-9 (Version None)
Quarter: 2006Q2

REPORT INFORMATION
  Report Type: 
  Country: None (occurrence: None)
  Receive Date: 20060425
  Receipt Date: 20060425
  Transmission Date: 20061013
  Serious: Yes (Life-Threatening)
  Sender: FDA-Public Use
  Company Number: None

PATIENT
  Age: 53 Year
  Sex: Male

DRUGS (1)
  1. CETACAINE SPRAY        CETYLITE INDUSTRIES [Suspect]
     Indication: LOCAL ANAESTHESIA
     Dosage: 1 SPRAY  ONCE   TOP
     Route: 061
     Dates: start: 20050918, end: 20050918

REACTIONS (3)
  - BLOOD METHAEMOGLOBIN PRESENT [None]
  - CYANOSIS [None]
  - OXYGEN SATURATION DECREASED [None]
